FAERS Safety Report 8608141-X (Version None)
Quarter: 2012Q3

REPORT INFORMATION
  Report Type: 
  Country: None (occurrence: None)
  Receive Date: 20120821
  Receipt Date: 20120813
  Transmission Date: 20120928
  Serious: No
  Sender: FDA-Public Use
  Company Number: US-BAYER-2011-036908

PATIENT
  Age: 16 Year
  Sex: Female
  Weight: 70.295 kg

DRUGS (1)
  1. BEYAZ [Suspect]
     Dosage: DAILY DOSE 1 DF
     Dates: start: 20110216

REACTIONS (1)
  - PREGNANCY ON ORAL CONTRACEPTIVE [None]
